FAERS Safety Report 7699724-2 (Version None)
Quarter: 2011Q3

REPORT INFORMATION
  Report Type: 
  Country: None (occurrence: None)
  Receive Date: 20110822
  Receipt Date: 20110811
  Transmission Date: 20111222
  Serious: No
  Sender: FDA-Public Use
  Company Number: US-BIOGENIDEC-2011BI030582

PATIENT
  Age: 23 Year
  Sex: Male

DRUGS (2)
  1. TYSABRI [Suspect]
     Indication: MULTIPLE SCLEROSIS
     Route: 042
     Dates: start: 20110316
  2. TYSABRI [Suspect]
     Route: 042
     Dates: start: 20091116, end: 20100216

REACTIONS (2)
  - COGNITIVE DISORDER [None]
  - MOOD SWINGS [None]
